FAERS Safety Report 18146486 (Version 1)
Quarter: 2020Q3

REPORT INFORMATION
  Report Type: Spontaneous
  Country: AR (occurrence: AR)
  Receive Date: 20200813
  Receipt Date: 20200813
  Transmission Date: 20201103
  Serious: Yes (Other)
  Sender: FDA-Public Use
  Company Number: AR-PFIZER INC-2020305738

PATIENT
  Age: 72 Year
  Sex: Male

DRUGS (1)
  1. INLYTA [Suspect]
     Active Substance: AXITINIB
     Indication: RENAL CANCER
     Dosage: 5 MG, CYCLIC (DAILY)
     Dates: start: 20190523

REACTIONS (4)
  - Bronchitis [Unknown]
  - Asthenia [Unknown]
  - Feeling abnormal [Unknown]
  - Pneumonia [Unknown]

NARRATIVE: CASE EVENT DATE: 20200729
